FAERS Safety Report 11334886 (Version 7)
Quarter: 2015Q4

REPORT INFORMATION
  Report Type: Report from Study
  Country: PT (occurrence: PT)
  Receive Date: 20150804
  Receipt Date: 20151230
  Transmission Date: 20160304
  Serious: Yes (Death, Hospitalization, Other)
  Sender: FDA-Public Use
  Company Number: PHHY2015PT008327

PATIENT
  Age: 72 Year
  Sex: Female

DRUGS (1)
  1. EXTAVIA [Suspect]
     Active Substance: INTERFERON BETA-1B
     Indication: MULTIPLE SCLEROSIS
     Dosage: 250 UG/ML, QOD
     Route: 058
     Dates: start: 20140319, end: 20150618

REACTIONS (12)
  - Fatigue [Unknown]
  - Death [Fatal]
  - Hypokinesia [Not Recovered/Not Resolved]
  - Cerebrovascular accident [Unknown]
  - Cerebral haemangioma [Recovering/Resolving]
  - Arthralgia [Unknown]
  - Respiratory tract infection [Unknown]
  - Balance disorder [Not Recovered/Not Resolved]
  - Asthenia [Recovering/Resolving]
  - Pneumonia [Unknown]
  - Fall [Unknown]
  - Joint swelling [Not Recovered/Not Resolved]

NARRATIVE: CASE EVENT DATE: 201412
